FAERS Safety Report 25824735 (Version 1)
Quarter: 2025Q3

REPORT INFORMATION
  Report Type: Spontaneous
  Country: US (occurrence: None)
  Receive Date: 20250918
  Receipt Date: 20250918
  Transmission Date: 20251021
  Serious: Yes (Disabling)
  Sender: FDA-CTU
  Company Number: None

PATIENT
  Age: 30 Year
  Sex: Female
  Weight: 54.43 kg

DRUGS (1)
  1. MIRENA [Suspect]
     Active Substance: LEVONORGESTREL
     Dates: start: 20190510, end: 20250303

REACTIONS (6)
  - Uterine injury [None]
  - Complication associated with device [None]
  - Uterine scar [None]
  - Infertility female [None]
  - Asherman^s syndrome [None]
  - Product advertising issue [None]

NARRATIVE: CASE EVENT DATE: 20250303
